FAERS Safety Report 4551424-3 (Version None)
Quarter: 2005Q1

REPORT INFORMATION
  Report Type: 
  Country: None (occurrence: None)
  Receive Date: 20050107
  Receipt Date: 20041222
  Transmission Date: 20050727
  Serious: Yes (Hospitalization)
  Sender: FDA-Public Use
  Company Number: DSA_25551_2004

PATIENT
  Age: 79 Year
  Sex: Female

DRUGS (1)
  1. HERBESSER [Suspect]
     Indication: HYPERTENSION
     Dosage: 100MG Q DAY PO
     Route: 048
     Dates: start: 20041119, end: 20041206

REACTIONS (4)
  - ERYTHEMA [None]
  - PRURITUS [None]
  - URTICARIA [None]
  - WHITE BLOOD CELL COUNT INCREASED [None]
